FAERS Safety Report 9378750 (Version 3)
Quarter: 2013Q4

REPORT INFORMATION
  Report Type: Spontaneous
  Country: US (occurrence: US)
  Receive Date: 20130702
  Receipt Date: 20131212
  Transmission Date: 20140711
  Serious: No
  Sender: FDA-Public Use
  Company Number: US-BIOGENIDEC-2013BI058614

PATIENT
  Sex: Female

DRUGS (2)
  1. TYSABRI [Suspect]
     Indication: MULTIPLE SCLEROSIS
     Route: 042
     Dates: start: 20130109
  2. ADDERAL [Concomitant]
     Indication: ATTENTION DEFICIT/HYPERACTIVITY DISORDER
     Route: 048
     Dates: start: 2012

REACTIONS (22)
  - Gait disturbance [Unknown]
  - Fear of death [Unknown]
  - Hiccups [Recovered/Resolved]
  - Stress [Recovered/Resolved]
  - General symptom [Not Recovered/Not Resolved]
  - Feeling of despair [Not Recovered/Not Resolved]
  - Anxiety [Not Recovered/Not Resolved]
  - Hypersomnia [Not Recovered/Not Resolved]
  - Coordination abnormal [Recovered/Resolved]
  - General physical health deterioration [Not Recovered/Not Resolved]
  - Emotional distress [Recovered/Resolved]
  - Abasia [Unknown]
  - Depression [Recovered/Resolved]
  - Mood altered [Recovered/Resolved]
  - Depressed level of consciousness [Recovered/Resolved]
  - White blood cell count increased [Unknown]
  - Asthma [Unknown]
  - Temperature intolerance [Unknown]
  - Pruritus [Unknown]
  - Urticaria [Unknown]
  - Vomiting [Recovered/Resolved]
  - Fatigue [Recovered/Resolved]
